FAERS Safety Report 4478743-3 (Version None)
Quarter: 2004Q4

REPORT INFORMATION
  Report Type: 
  Country: None (occurrence: None)
  Receive Date: 20040923
  Receipt Date: 20040611
  Transmission Date: 20050328
  Serious: No
  Sender: FDA-Public Use
  Company Number: USA040466153

PATIENT
  Age: 78 Year
  Sex: Female
  Weight: 52 kg

DRUGS (2)
  1. FORTEO [Suspect]
     Indication: OSTEOPOROSIS
     Dosage: 20 UG EVERY OTHER DAY
     Dates: start: 20040101
  2. DONNATAL [Concomitant]

REACTIONS (7)
  - CONTUSION [None]
  - DIZZINESS [None]
  - ERYTHEMA [None]
  - INJECTION SITE HAEMORRHAGE [None]
  - INJECTION SITE NODULE [None]
  - JOINT SWELLING [None]
  - PAIN IN EXTREMITY [None]
